FAERS Safety Report 8948253 (Version 1)
Quarter: 2012Q4

REPORT INFORMATION
  Report Type: Spontaneous
  Country: US (occurrence: None)
  Receive Date: 20121206
  Receipt Date: 20121206
  Transmission Date: 20130627
  Serious: No
  Sender: FDA-Public Use
  Company Number: None

PATIENT
  Age: 72 Year
  Sex: Female
  Weight: 71.67 kg

DRUGS (2)
  1. METHYLPREDNISOLONE ACETATE [Suspect]
     Indication: CERVICAL SPONDYLOSIS
     Dosage: 80mg prn Perineural
     Dates: start: 20120717, end: 20120926
  2. METHYLPREDNISOLONE ACETATE [Suspect]
     Indication: ARTHROSIS
     Dosage: 80mg prn Perineural
     Dates: start: 20120717, end: 20120926

REACTIONS (5)
  - Product contamination [None]
  - Pain [None]
  - Dizziness [None]
  - Computerised tomogram abnormal [None]
  - Post procedural complication [None]
